FAERS Safety Report 10270375 (Version 1)
Quarter: 2014Q2

REPORT INFORMATION
  Report Type: Report from Study
  Country: DE (occurrence: None)
  Receive Date: 20140626
  Receipt Date: 20140626
  Transmission Date: 20141212
  Serious: Yes (Other)
  Sender: FDA-Public Use
  Company Number: HRA-CDB20140078

PATIENT
  Age: 33 Year
  Sex: Female
  Weight: 60 kg

DRUGS (1)
  1. ELLAONE 30 MG TABLETTE (ELLAONE) (ULIPRISTAL ACETATE) [Suspect]
     Indication: POST COITAL CONTRACEPTION
     Dates: start: 20140511, end: 20140511

REACTIONS (3)
  - Pregnancy after post coital contraception [None]
  - Abortion spontaneous [None]
  - Exposure during pregnancy [None]
